FAERS Safety Report 8668539 (Version 3)
Quarter: 2012Q4

REPORT INFORMATION
  Report Type: 
  Country: US (occurrence: US)
  Receive Date: 20120717
  Receipt Date: 20120828
  Transmission Date: 20130627
  Serious: Yes (Death)
  Sender: FDA-Public Use
  Company Number: US-BRISTOL-MYERS SQUIBB COMPANY-16766768

PATIENT
  Age: 70 Year
  Sex: Female

DRUGS (12)
  1. ABILIFY [Suspect]
     Indication: DEPRESSION
     Dosage: a few months ago 
started at 2 mg
     Route: 048
  2. AMBIEN [Concomitant]
  3. CELEXA [Concomitant]
  4. COMPAZINE [Concomitant]
  5. DECADRON [Concomitant]
  6. DURAGESIC [Concomitant]
  7. KEPPRA [Concomitant]
  8. FLUTICASONE [Concomitant]
  9. PHENERGAN [Concomitant]
  10. OXYCODONE [Concomitant]
  11. ZOFRAN [Concomitant]
  12. XANAX [Concomitant]

REACTIONS (1)
  - Malignant neoplasm progression [Fatal]
